FAERS Safety Report 9208954 (Version 2)
Quarter: 2013Q3

REPORT INFORMATION
  Report Type: Spontaneous
  Country: US (occurrence: None)
  Receive Date: 20120817
  Receipt Date: 20130815
  Transmission Date: 20140515
  Serious: Yes (Hospitalization, Other)
  Sender: FDA-Public Use
  Company Number: ADR-2012-00986

PATIENT
  Sex: Male

DRUGS (4)
  1. BACLOFEN INTRATHECAL (BACLOFEN INJECTION) [Suspect]
     Indication: MUSCLE SPASTICITY
  2. BACLOFEN INTRATHECAL (BACLOFEN INJECTION) [Suspect]
  3. MORPHINE, BUPIVACANE [Concomitant]
  4. BUPIVACAINE [Concomitant]

REACTIONS (9)
  - Drug withdrawal syndrome [None]
  - Convulsion [None]
  - Unresponsive to stimuli [None]
  - Mental status changes [None]
  - Muscle spasticity [None]
  - Hypertension [None]
  - Grand mal convulsion [None]
  - Pain [None]
  - No therapeutic response [None]
